FAERS Safety Report 8595903 (Version 4)
Quarter: 2014Q2

REPORT INFORMATION
  Report Type: Spontaneous
  Country: US (occurrence: US)
  Receive Date: 20120605
  Receipt Date: 20140401
  Transmission Date: 20141212
  Serious: No
  Sender: FDA-Public Use
  Company Number: US-ASTRAZENECA-2012SE35918

PATIENT
  Age: 41 Year
  Sex: Male

DRUGS (16)
  1. NEXIUM [Suspect]
     Indication: GASTROOESOPHAGEAL REFLUX DISEASE
     Route: 048
  2. NEXIUM [Suspect]
     Indication: GASTROOESOPHAGEAL REFLUX DISEASE
     Dosage: ONCE DAILY
     Route: 048
     Dates: start: 1997, end: 2010
  3. NEXIUM [Suspect]
     Indication: GASTROOESOPHAGEAL REFLUX DISEASE
     Route: 048
     Dates: start: 20091219
  4. NEXIUM [Suspect]
     Indication: GASTROOESOPHAGEAL REFLUX DISEASE
     Route: 048
     Dates: start: 20100707
  5. HYDROCODONE [Concomitant]
  6. CARISOPRODOL [Concomitant]
     Indication: PAIN
     Dates: start: 20091121
  7. CARISOPRODOL [Concomitant]
     Indication: MUSCLE SPASMS
     Dates: start: 20091121
  8. VERAPAMIL [Concomitant]
     Dates: start: 20091125
  9. ASPIRIN [Concomitant]
     Indication: CARDIAC DISORDER
  10. PHENYTOIN [Concomitant]
     Indication: CONVULSION
     Dates: start: 20110318
  11. XANNAX [Concomitant]
     Indication: STRESS
     Dates: start: 20080909
  12. XANNAX [Concomitant]
     Indication: ANXIETY
     Dates: start: 20080909
  13. AMOXICILLIN [Concomitant]
     Dates: start: 20090508
  14. LUNESTA [Concomitant]
     Dates: start: 20091121
  15. HYDROCODONE W/ACETAMINOPHEN [Concomitant]
     Dosage: 10/325 MG TAB
     Dates: start: 20090914
  16. BUTAL/ACETAMIN/CAF/CODEINE [Concomitant]
     Dates: start: 20091217

REACTIONS (8)
  - Osteoporosis [Unknown]
  - Lumbar vertebral fracture [Unknown]
  - Multiple fractures [Unknown]
  - Fractured coccyx [Unknown]
  - Intervertebral disc degeneration [Unknown]
  - Bone disorder [Unknown]
  - Bone pain [Unknown]
  - Spinal osteoarthritis [Unknown]
